FAERS Safety Report 10694150 (Version 1)
Quarter: 2015Q1

REPORT INFORMATION
  Report Type: Spontaneous
  Country: US (occurrence: US)
  Receive Date: 20150106
  Receipt Date: 20150106
  Transmission Date: 20150721
  Serious: Yes (Death, Hospitalization)
  Sender: FDA-Public Use
  Company Number: US-IMPAX LABORATORIES, INC-2014-IPXL-00040

PATIENT
  Age: 46 Year
  Sex: Female

DRUGS (1)
  1. MINOCYCLINE HYDROCHLORIDE. [Suspect]
     Active Substance: MINOCYCLINE HYDROCHLORIDE
     Indication: DERMATITIS
     Dosage: UNK
     Route: 065

REACTIONS (6)
  - Myocarditis [Fatal]
  - Eosinophilic myocarditis [Fatal]
  - Acute kidney injury [Fatal]
  - Multi-organ failure [Fatal]
  - Tubulointerstitial nephritis [Fatal]
  - Drug reaction with eosinophilia and systemic symptoms [Fatal]
